FAERS Safety Report 7290146 (Version 11)
Quarter: 2013Q4

REPORT INFORMATION
  Report Type: Spontaneous
  Country: US (occurrence: US)
  Receive Date: 20100223
  Receipt Date: 20131104
  Transmission Date: 20140711
  Serious: Yes (Death, Other)
  Sender: FDA-Public Use
  Company Number: PHEH2010US02434

PATIENT
  Sex: Female
  Weight: 45.35 kg

DRUGS (5)
  1. ZOMETA [Suspect]
     Indication: BREAST CANCER METASTATIC
     Dosage: 4 MG, QMO
     Route: 042
     Dates: start: 20031117
  2. ZOMETA [Suspect]
     Dates: start: 200309, end: 200707
  3. AMOXICILLIN [Concomitant]
     Dosage: 500 MG, BID
     Dates: start: 20081230
  4. AROMASIN [Concomitant]
  5. FASLODEX [Concomitant]

REACTIONS (48)
  - Death [Fatal]
  - Osteonecrosis of jaw [Unknown]
  - Physical disability [Unknown]
  - Anxiety [Unknown]
  - Injury [Unknown]
  - Pain [Unknown]
  - Activities of daily living impaired [Unknown]
  - Anhedonia [Unknown]
  - Primary sequestrum [Unknown]
  - Bacterial disease carrier [Unknown]
  - Exposed bone in jaw [Unknown]
  - Haemorrhage [Unknown]
  - Dysgeusia [Unknown]
  - Oral discomfort [Unknown]
  - Swelling face [Unknown]
  - Trismus [Unknown]
  - Paraesthesia [Unknown]
  - Paranasal sinus hypersecretion [Unknown]
  - Dysaesthesia [Unknown]
  - Metastases to bone [Unknown]
  - Metastases to spine [Unknown]
  - Metastases to pelvis [Unknown]
  - Osteoarthritis [Unknown]
  - Paranasal cyst [Unknown]
  - Gait disturbance [Unknown]
  - Sinusitis [Unknown]
  - Chronic sinusitis [Unknown]
  - Fistula [Unknown]
  - Intervertebral disc protrusion [Unknown]
  - Scoliosis [Unknown]
  - Neuropathy peripheral [Unknown]
  - Aortic arteriosclerosis [Unknown]
  - Gingival swelling [Unknown]
  - Pain in jaw [Unknown]
  - Weight decreased [Unknown]
  - Onychomycosis [Unknown]
  - Foot deformity [Unknown]
  - Carpal tunnel syndrome [Unknown]
  - Spinal column stenosis [Unknown]
  - Intervertebral disc degeneration [Unknown]
  - Vascular calcification [Unknown]
  - Facet joint syndrome [Unknown]
  - Breast calcifications [Unknown]
  - Peripheral arterial occlusive disease [Unknown]
  - Phlebolith [Unknown]
  - Blood glucose increased [Unknown]
  - Hypoaesthesia [Unknown]
  - Constipation [Unknown]
